FAERS Safety Report 7472647-X (Version None)
Quarter: 2011Q1

REPORT INFORMATION
  Report Type: 
  Country: None (occurrence: None)
  Receive Date: 20110302
  Receipt Date: 20100708
  Transmission Date: 20110831
  Serious: Yes (Other)
  Sender: FDA-Public Use
  Company Number: 163-21880-10070669

PATIENT

DRUGS (7)
  1. DOXORUBICIN HCL [Concomitant]
  2. CYCLOPHOSPHAMIDE [Concomitant]
  3. VINCRISTINE [Concomitant]
  4. RITUXIMAB (RITUXIMAB) [Concomitant]
  5. PREDNISONE [Concomitant]
  6. PEGFILGRASTIM (PEGFILGRASTIM) [Concomitant]
  7. REVLIMID [Suspect]
     Indication: NON-HODGKIN'S LYMPHOMA
     Dosage: 15-25MG, DAILY, PO
     Route: 048

REACTIONS (9)
  - URINARY TRACT INFECTION [None]
  - SKIN INFECTION [None]
  - NAUSEA [None]
  - THROMBOCYTOPENIA [None]
  - NEUTROPENIA [None]
  - OTITIS MEDIA [None]
  - ALOPECIA [None]
  - RASH [None]
  - NEUROPATHY PERIPHERAL [None]
